FAERS Safety Report 26176036 (Version 1)
Quarter: 2025Q4

REPORT INFORMATION
  Report Type: Report from Study
  Country: CN (occurrence: None)
  Receive Date: 20251218
  Receipt Date: 20251218
  Transmission Date: 20260117
  Serious: Yes (Other)
  Sender: UCB
  Company Number: CN-UCBSA-2025079320

PATIENT

DRUGS (1)
  1. ROTIGOTINE [Suspect]
     Active Substance: ROTIGOTINE
     Indication: Parkinson^s disease
     Dosage: MEAN DAILY DOSAGE WAS 3.42 MG

REACTIONS (15)
  - Hallucination [Unknown]
  - Parkinson^s disease [Unknown]
  - Application site pruritus [Unknown]
  - Application site dermatitis [Unknown]
  - Application site erythema [Unknown]
  - Nausea [Unknown]
  - Dizziness [Unknown]
  - Vomiting [Unknown]
  - COVID-19 [Unknown]
  - Pruritus [Unknown]
  - Subcutaneous abscess [Unknown]
  - Gastrointestinal disorder [Unknown]
  - Administration site reaction [Unknown]
  - Nervous system disorder [Unknown]
  - Drug ineffective [Unknown]
